FAERS Safety Report 9339322 (Version 1)
Quarter: 2013Q2

REPORT INFORMATION
  Report Type: Spontaneous
  Country: US (occurrence: US)
  Receive Date: 20130610
  Receipt Date: 20130610
  Transmission Date: 20140414
  Serious: Yes (Life-Threatening, Hospitalization)
  Sender: FDA-Public Use
  Company Number: US-BAYER-2013-069557

PATIENT
  Age: 22 Year
  Sex: Female
  Weight: 58.96 kg

DRUGS (7)
  1. YASMIN [Suspect]
  2. TERCONAZOLE [Concomitant]
     Dosage: 0.8 %, UNK
     Route: 067
     Dates: start: 20050302
  3. FLEXERIL [Concomitant]
  4. NAPROXEN [Concomitant]
  5. MULTIVITAMIN [Concomitant]
  6. LEVAQUIN [Concomitant]
  7. FLUCONAZOLE [Concomitant]
     Dosage: 150 MG, UNK
     Dates: start: 20050113

REACTIONS (7)
  - Pulmonary embolism [None]
  - Deep vein thrombosis [None]
  - Pelvic venous thrombosis [None]
  - Renal vein thrombosis [None]
  - Vena cava thrombosis [None]
  - Pelvic pain [None]
  - Pyrexia [None]
